FAERS Safety Report 7138665-6 (Version None)
Quarter: 2010Q4

REPORT INFORMATION
  Report Type: 
  Country: None (occurrence: None)
  Receive Date: 20101206
  Receipt Date: 20101201
  Transmission Date: 20110411
  Serious: Yes (Other)
  Sender: FDA-Public Use
  Company Number: AU-MERCK-0807AUS00164

PATIENT
  Age: 73 Year
  Sex: Male
  Weight: 83 kg

DRUGS (6)
  1. ZOCOR [Suspect]
     Indication: MYOCARDIAL ISCHAEMIA
     Route: 048
     Dates: end: 20071018
  2. ERYTHROMYCIN ETHYLSUCCINATE [Suspect]
     Indication: COUGH
     Route: 065
     Dates: start: 20070925, end: 20071015
  3. HYDROXOCOBALAMIN [Concomitant]
     Route: 065
  4. AMLODIPINE BESYLATE [Concomitant]
     Route: 065
  5. ACETAMINOPHEN [Concomitant]
     Route: 065
  6. WARFARIN SODIUM [Concomitant]
     Route: 065

REACTIONS (7)
  - BLOOD CREATINE PHOSPHOKINASE INCREASED [None]
  - DRUG INTERACTION [None]
  - HYPERHIDROSIS [None]
  - LIVER FUNCTION TEST ABNORMAL [None]
  - MUSCULOSKELETAL STIFFNESS [None]
  - PYREXIA [None]
  - RHABDOMYOLYSIS [None]
